FAERS Safety Report 17560548 (Version 1)
Quarter: 2020Q1

REPORT INFORMATION
  Report Type: Spontaneous
  Country: US (occurrence: US)
  Receive Date: 20200319
  Receipt Date: 20200319
  Transmission Date: 20200409
  Serious: No
  Sender: FDA-Public Use
  Company Number: US-ASTRAZENECA-2020SE31571

PATIENT
  Age: 12601 Day
  Sex: Female
  Weight: 93 kg

DRUGS (1)
  1. BYDUREON BCISE [Suspect]
     Active Substance: EXENATIDE
     Indication: DIABETES MELLITUS
     Route: 058
     Dates: start: 20200207

REACTIONS (5)
  - Anxiety [Unknown]
  - Injection site erythema [Unknown]
  - Headache [Unknown]
  - Nausea [Unknown]
  - Injection site nodule [Unknown]

NARRATIVE: CASE EVENT DATE: 201910
